FAERS Safety Report 4390112-3 (Version None)
Quarter: 2004Q3

REPORT INFORMATION
  Report Type: 
  Country: None (occurrence: None)
  Receive Date: 20040706
  Receipt Date: 20031218
  Transmission Date: 20050211
  Serious: Yes (Hospitalization, Disabling)
  Sender: FDA-Public Use
  Company Number: US-MERCK-0312USA02103

PATIENT
  Age: 43 Year
  Sex: Male
  Weight: 89 kg

DRUGS (7)
  1. ADDERALL TABLETS [Concomitant]
     Indication: ATTENTION DEFICIT/HYPERACTIVITY DISORDER
     Route: 065
  2. CEFZIL [Concomitant]
     Route: 065
     Dates: start: 20011010, end: 20010101
  3. BIAXIN XL [Concomitant]
     Route: 065
     Dates: start: 20020104, end: 20020101
  4. ENTEX CAP [Concomitant]
     Route: 048
     Dates: start: 20020108, end: 20020101
  5. IBUPROFEN [Concomitant]
     Route: 065
  6. VIOXX [Suspect]
     Indication: BACK PAIN
     Route: 048
     Dates: start: 20010601, end: 20020629
  7. VIOXX [Suspect]
     Indication: ARTHRITIS
     Route: 048
     Dates: start: 20010601, end: 20020629

REACTIONS (15)
  - ANXIETY [None]
  - ARTHRALGIA [None]
  - ATRIAL FIBRILLATION [None]
  - CARDIAC FAILURE CONGESTIVE [None]
  - CEREBROVASCULAR ACCIDENT [None]
  - CONGESTIVE CARDIOMYOPATHY [None]
  - DEPRESSION [None]
  - HYPERTENSION [None]
  - INSOMNIA [None]
  - INTRACARDIAC THROMBUS [None]
  - MITRAL VALVE INCOMPETENCE [None]
  - PNEUMONIA [None]
  - SINUS TACHYCARDIA [None]
  - STRESS SYMPTOMS [None]
  - TRICUSPID VALVE INCOMPETENCE [None]
